FAERS Safety Report 8947582 (Version 2)
Quarter: 2012Q4

REPORT INFORMATION
  Report Type: 
  Country: ES (occurrence: ES)
  Receive Date: 20121205
  Receipt Date: 20121217
  Transmission Date: 20130627
  Serious: Yes (Hospitalization, Other)
  Sender: FDA-Public Use
  Company Number: ES-ELI_LILLY_AND_COMPANY-ES201211007957

PATIENT
  Age: 51 Year
  Sex: Female

DRUGS (3)
  1. CYMBALTA [Suspect]
     Indication: DEPRESSION
     Dosage: 60 mg, tid
     Route: 048
     Dates: start: 20120307, end: 20120413
  2. LEPONEX [Concomitant]
     Indication: SCHIZOPHRENIA
     Dosage: 250 mg, tid
     Route: 048
     Dates: start: 20120314, end: 20120510
  3. MOVICOL [Concomitant]
     Indication: CONSTIPATION
     Dosage: 13.7 g, tid
     Route: 048
     Dates: start: 20120409

REACTIONS (4)
  - Hepatic failure [Recovered/Resolved]
  - Cholelithiasis [Unknown]
  - Lymphadenopathy [Unknown]
  - Overdose [Recovered/Resolved]
